FAERS Safety Report 9291247 (Version 1)
Quarter: 2012Q4

REPORT INFORMATION
  Report Type: Spontaneous
  Country: US (occurrence: None)
  Receive Date: 20121102
  Receipt Date: 20121102
  Transmission Date: 20130627
  Serious: Yes (Other)
  Sender: FDA-Public Use
  Company Number: NSR_00662_2012

PATIENT
  Age: 71 Year
  Sex: Female
  Weight: 129.28 kg

DRUGS (3)
  1. FLUOXETINE 40 MG [Suspect]
     Indication: ANXIETY
     Route: 048
     Dates: start: 2011
  2. INSULIN [Concomitant]
  3. PROTONIX [Concomitant]

REACTIONS (4)
  - Drug hypersensitivity [None]
  - Rash [None]
  - Pain of skin [None]
  - Dermatitis [None]
